FAERS Safety Report 12123927 (Version 1)
Quarter: 2016Q1

REPORT INFORMATION
  Report Type: Spontaneous
  Country: US (occurrence: US)
  Receive Date: 20160229
  Receipt Date: 20160229
  Transmission Date: 20160526
  Serious: No
  Sender: FDA-Public Use
  Company Number: US-PFIZER INC-2016092006

PATIENT
  Age: 65 Year
  Sex: Female

DRUGS (3)
  1. PREMARIN [Suspect]
     Active Substance: ESTROGENS, CONJUGATED
     Dosage: UNK
  2. NATURE-THROID [Suspect]
     Active Substance: THYROID, PORCINE
     Dosage: UNK
  3. TITANIUM DIOXIDE [Suspect]
     Active Substance: TITANIUM DIOXIDE
     Dosage: UNK

REACTIONS (3)
  - Reaction to drug excipients [Unknown]
  - Alopecia [Unknown]
  - Urticaria [Unknown]
